FAERS Safety Report 7387887-8 (Version None)
Quarter: 2011Q1

REPORT INFORMATION
  Report Type: 
  Country: None (occurrence: None)
  Receive Date: 20110331
  Receipt Date: 20110316
  Transmission Date: 20110831
  Serious: Yes (Hospitalization, Other)
  Sender: FDA-Public Use
  Company Number: US-JNJFOC-20110307020

PATIENT
  Age: 56 Year
  Sex: Male

DRUGS (8)
  1. PREDNISONE [Concomitant]
     Indication: RHEUMATOID ARTHRITIS
  2. INFLIXIMAB, RECOMBINANT [Suspect]
     Indication: RHEUMATOID ARTHRITIS
     Route: 042
  3. HYDROXYCHLOROQUINE SULFATE [Concomitant]
     Indication: RHEUMATOID ARTHRITIS
  4. LEFLUNOMIDE [Concomitant]
  5. INFLIXIMAB, RECOMBINANT [Suspect]
     Route: 042
  6. METHOTREXATE [Concomitant]
     Indication: RHEUMATOID ARTHRITIS
  7. LEFLUNOMIDE [Concomitant]
     Indication: RHEUMATOID ARTHRITIS
  8. ALL OTHER THERAPEUTIC DRUG [Concomitant]
     Indication: RHEUMATOID ARTHRITIS

REACTIONS (5)
  - SYNOVITIS [None]
  - DRUG INEFFECTIVE [None]
  - MYCOBACTERIUM MARINUM INFECTION [None]
  - HISTOPLASMOSIS DISSEMINATED [None]
  - KLEBSIELLA INFECTION [None]
